FAERS Safety Report 9029739 (Version 1)
Quarter: 2013Q1

REPORT INFORMATION
  Report Type: Spontaneous
  Country: US (occurrence: US)
  Receive Date: 20130124
  Receipt Date: 20130124
  Transmission Date: 20140127
  Serious: Yes (Other)
  Sender: FDA-Public Use
  Company Number: CHPA2013US001426

PATIENT
  Age: 73 Year
  Sex: Female

DRUGS (1)
  1. BUCKLEY^S CHEST CONGESTION [Suspect]
     Indication: BRONCHITIS
     Dosage: UNK, PRN
     Route: 048

REACTIONS (3)
  - Bronchitis [Unknown]
  - Therapeutic response unexpected [Unknown]
  - Off label use [Unknown]
